FAERS Safety Report 13380846 (Version 2)
Quarter: 2018Q1

REPORT INFORMATION
  Report Type: Report from Study
  Country: None (occurrence: US)
  Receive Date: 20170329
  Receipt Date: 20180304
  Transmission Date: 20180508
  Serious: Yes (Hospitalization)
  Sender: FDA-Public Use
  Company Number: US-ABBVIE-17K-163-1921167-00

PATIENT
  Age: 41 Year
  Sex: Female
  Weight: 83.54 kg

DRUGS (3)
  1. HUMIRA [Suspect]
     Active Substance: ADALIMUMAB
     Indication: CROHN^S DISEASE
     Route: 058
     Dates: start: 2015, end: 2016
  2. HUMIRA [Suspect]
     Active Substance: ADALIMUMAB
     Route: 058
     Dates: start: 2016, end: 201801
  3. HUMIRA [Suspect]
     Active Substance: ADALIMUMAB
     Route: 058
     Dates: start: 201801

REACTIONS (10)
  - Fistula discharge [Not Recovered/Not Resolved]
  - Anal fistula infection [Not Recovered/Not Resolved]
  - Drug level decreased [Unknown]
  - Injection site pain [Not Recovered/Not Resolved]
  - Device issue [Unknown]
  - Therapeutic response shortened [Recovered/Resolved]
  - Crohn^s disease [Recovering/Resolving]
  - Bacterial toxaemia [Not Recovered/Not Resolved]
  - Diarrhoea [Recovering/Resolving]
  - Injection site haemorrhage [Not Recovered/Not Resolved]

NARRATIVE: CASE EVENT DATE: 2015
